FAERS Safety Report 6723440-4 (Version None)
Quarter: 2010Q2

REPORT INFORMATION
  Report Type: 
  Country: None (occurrence: None)
  Receive Date: 20100513
  Receipt Date: 20100506
  Transmission Date: 20101027
  Serious: Yes (Hospitalization, Other)
  Sender: FDA-Public Use
  Company Number: PHHO2010IT05335

PATIENT
  Sex: Male
  Weight: 80 kg

DRUGS (16)
  1. DIOVAN [Suspect]
     Indication: CARDIAC FAILURE CHRONIC
     Dosage: LEVEL 1
     Route: 048
     Dates: start: 20100329, end: 20100406
  2. BLINDED LCZ696 LCZ+TAB [Suspect]
     Indication: CARDIAC FAILURE CHRONIC
     Dosage: LEVEL 1
     Route: 048
     Dates: start: 20100329, end: 20100406
  3. BLINDED NO TREATMENT RECEIVED NOMED [Suspect]
     Indication: CARDIAC FAILURE CHRONIC
     Dosage: LEVEL 1
     Route: 048
     Dates: start: 20100329, end: 20100406
  4. PLACEBO [Suspect]
  5. DIURETICS [Suspect]
  6. POTASSIUM [Suspect]
  7. ANGIOTENSIN CONVERTING ENZYME BLOCKERS [Suspect]
  8. KANRENOL [Concomitant]
     Indication: CARDIAC FAILURE
     Dosage: UNK
     Dates: start: 20100101, end: 20100406
  9. ZAROXOLYN [Concomitant]
     Indication: CARDIAC FAILURE
     Dosage: UNK
     Dates: start: 20100101, end: 20100406
  10. LANOXIN [Concomitant]
     Indication: ATRIAL FLUTTER
     Dosage: UNK
     Dates: start: 20090921, end: 20100406
  11. WARFARIN SODIUM [Concomitant]
  12. PROTON PUMP INHIBITORS [Concomitant]
  13. FUROSEMIDE [Concomitant]
  14. METOLAZONE [Concomitant]
  15. AMLODIPINE BESYLATE [Concomitant]
  16. BISOPROLOL [Concomitant]

REACTIONS (11)
  - ANAEMIA [None]
  - ASTHENIA [None]
  - AZOTAEMIA [None]
  - DYSPNOEA [None]
  - GASTRIC HAEMORRHAGE [None]
  - GASTRITIS [None]
  - GASTRITIS EROSIVE [None]
  - HYPERKALAEMIA [None]
  - HYPOTENSION [None]
  - MELAENA [None]
  - RENAL FAILURE ACUTE [None]
